FAERS Safety Report 9270888 (Version 1)
Quarter: 2013Q2

REPORT INFORMATION
  Report Type: Spontaneous
  Country: GB (occurrence: GB)
  Receive Date: 20130506
  Receipt Date: 20130506
  Transmission Date: 20140414
  Serious: Yes (Disabling)
  Sender: FDA-Public Use
  Company Number: GB-ROCHE-1221002

PATIENT
  Age: 38 Year
  Sex: Female
  Weight: 67.12 kg

DRUGS (9)
  1. RIVOTRIL [Suspect]
     Indication: ANXIETY
     Route: 048
     Dates: start: 20130304, end: 20130308
  2. RIVOTRIL [Suspect]
     Indication: CONVULSION
  3. LAMICTAL [Concomitant]
     Route: 065
  4. LAMICTAL [Concomitant]
     Route: 065
     Dates: start: 20130304, end: 20130308
  5. LAMICTAL [Concomitant]
     Route: 065
     Dates: start: 20130304, end: 20130308
  6. LAMICTAL [Concomitant]
     Route: 065
     Dates: start: 20130304, end: 20130308
  7. PREGABALIN [Concomitant]
     Route: 065
  8. PROPRANOLOL [Concomitant]
     Route: 065
  9. TRAZODONE [Concomitant]
     Route: 065

REACTIONS (5)
  - Gait disturbance [Unknown]
  - Irritability [Recovered/Resolved with Sequelae]
  - Coordination abnormal [Recovered/Resolved with Sequelae]
  - Memory impairment [Recovered/Resolved with Sequelae]
  - Speech disorder [Recovered/Resolved with Sequelae]
